FAERS Safety Report 20590158 (Version 1)
Quarter: 2022Q1

REPORT INFORMATION
  Report Type: Spontaneous
  Country: US (occurrence: None)
  Receive Date: 20220312
  Receipt Date: 20220312
  Transmission Date: 20220423
  Serious: No
  Sender: FDA-Public Use
  Company Number: None

PATIENT
  Age: 66 Year
  Sex: Male
  Weight: 82.8 kg

DRUGS (9)
  1. QULIPTA [Suspect]
     Active Substance: ATOGEPANT
     Indication: Headache
     Dosage: OTHER QUANTITY : 1 TABLET(S);?FREQUENCY : DAILY;?
     Route: 048
     Dates: start: 20220207, end: 20220309
  2. Triemtrerine [Concomitant]
  3. filodipine [Concomitant]
  4. atorvarstatin [Concomitant]
  5. MULTI [Concomitant]
  6. VITAMIN B COMPLEX [Concomitant]
     Active Substance: CYANOCOBALAMIN\DEXPANTHENOL\NIACINAMIDE\PYRIDOXINE HYDROCHLORIDE\RIBOFLAVIN 5^-PHOSPHATE SODIUM\THIA
  7. NEXIUM [Concomitant]
     Active Substance: ESOMEPRAZOLE MAGNESIUM
  8. MAGNESIUM [Concomitant]
     Active Substance: MAGNESIUM
  9. FISH OIL [Concomitant]
     Active Substance: FISH OIL

REACTIONS (5)
  - Adverse drug reaction [None]
  - Constipation [None]
  - Sleep disorder [None]
  - Gastrooesophageal reflux disease [None]
  - Weight decreased [None]

NARRATIVE: CASE EVENT DATE: 20220207
